FAERS Safety Report 10258488 (Version 1)
Quarter: 2014Q2

REPORT INFORMATION
  Report Type: Spontaneous
  Country: IN (occurrence: IN)
  Receive Date: 20140625
  Receipt Date: 20140625
  Transmission Date: 20141212
  Serious: Yes (Death)
  Sender: FDA-Public Use
  Company Number: IN-ASTELLAS-2014US007315

PATIENT
  Age: 23 Year
  Sex: Male

DRUGS (1)
  1. AMPHOTERICIN B [Suspect]
     Indication: VISCERAL LEISHMANIASIS
     Route: 065

REACTIONS (1)
  - Drug ineffective [Fatal]
